FAERS Safety Report 23745887 (Version 3)
Quarter: 2024Q2

REPORT INFORMATION
  Report Type: Report from Study
  Country: US (occurrence: US)
  Receive Date: 20240416
  Receipt Date: 20240608
  Transmission Date: 20240716
  Serious: Yes (Hospitalization, Other)
  Sender: FDA-Public Use
  Company Number: US-ABBVIE-5719744

PATIENT
  Sex: Female

DRUGS (2)
  1. SKYRIZI [Suspect]
     Active Substance: RISANKIZUMAB-RZAA
     Indication: Crohn^s disease
     Dosage: 360 MG/2.4 ML  UNDER THE SKIN AT WEEK 12 AND THEN EVERY 8?WEEKS THEREAFTER
     Route: 058
     Dates: start: 20231101
  2. SKYRIZI [Suspect]
     Active Substance: RISANKIZUMAB-RZAA
     Indication: Osteoarthritis
     Route: 058

REACTIONS (5)
  - Crohn^s disease [Unknown]
  - Pain [Unknown]
  - Drug ineffective [Unknown]
  - Appendicitis [Unknown]
  - Arthritis [Unknown]
